FAERS Safety Report 24783435 (Version 1)
Quarter: 2024Q4

REPORT INFORMATION
  Report Type: Spontaneous
  Country: FR (occurrence: FR)
  Receive Date: 20241227
  Receipt Date: 20241227
  Transmission Date: 20250115
  Serious: Yes (Hospitalization)
  Sender: FRESENIUS KABI
  Company Number: None

PATIENT
  Age: 15 Year
  Sex: Male
  Weight: 97 kg

DRUGS (2)
  1. PROPOFOL [Suspect]
     Active Substance: PROPOFOL
     Indication: Sedation
     Dosage: ROA: INTRAVENOUS (NOT OTHERWISE SPECIFIED)
     Dates: start: 20241009, end: 20241015
  2. SEVOFLURANE [Concomitant]
     Active Substance: SEVOFLURANE
     Indication: Sedation
     Dosage: ROA: RESPIRATORY (INHALATION)
     Dates: start: 20241015, end: 20241016

REACTIONS (4)
  - Pericardial effusion [Recovering/Resolving]
  - Troponin increased [Recovered/Resolved]
  - Hyperthermia [Recovered/Resolved]
  - Blood creatine phosphokinase increased [Recovered/Resolved]

NARRATIVE: CASE EVENT DATE: 20241011
